FAERS Safety Report 18965694 (Version 3)
Quarter: 2021Q2

REPORT INFORMATION
  Report Type: Spontaneous
  Country: JP (occurrence: JP)
  Receive Date: 20210304
  Receipt Date: 20210503
  Transmission Date: 20210717
  Serious: Yes (Other)
  Sender: FDA-Public Use
  Company Number: JP-AMGEN-JPNNI2021033454

PATIENT

DRUGS (5)
  1. 5?FU [FLUOROURACIL] [Concomitant]
     Active Substance: FLUOROURACIL
     Dosage: UNK
     Route: 050
  2. OXALIPLATIN. [Concomitant]
     Active Substance: OXALIPLATIN
     Indication: COLON CANCER RECURRENT
     Dosage: UNK
     Route: 050
  3. PANITUMUMAB [Suspect]
     Active Substance: PANITUMUMAB
     Indication: COLON CANCER RECURRENT
     Dosage: UNK
     Route: 050
  4. LEUCOVORIN [CALCIUM FOLINATE] [Concomitant]
     Active Substance: LEUCOVORIN
     Indication: COLON CANCER RECURRENT
     Dosage: UNK
     Route: 050
  5. 5?FU [FLUOROURACIL] [Concomitant]
     Active Substance: FLUOROURACIL
     Indication: COLON CANCER RECURRENT
     Dosage: UNK
     Route: 040

REACTIONS (21)
  - Blood creatine increased [Unknown]
  - Anaemia [Unknown]
  - Hypertension [Unknown]
  - Haemorrhage [Unknown]
  - Paronychia [Unknown]
  - Neutropenia [Unknown]
  - Hypersensitivity [Unknown]
  - Diarrhoea [Unknown]
  - Thrombocytopenia [Unknown]
  - Blood alkaline phosphatase increased [Unknown]
  - Blood bilirubin increased [Unknown]
  - Stomatitis [Unknown]
  - Nausea [Unknown]
  - Fatigue [Unknown]
  - Leukopenia [Unknown]
  - Peripheral sensory neuropathy [Unknown]
  - Peripheral motor neuropathy [Unknown]
  - Palmar-plantar erythrodysaesthesia syndrome [Unknown]
  - Decreased appetite [Unknown]
  - Vomiting [Unknown]
  - Rash [Unknown]
